FAERS Safety Report 6407800-7 (Version None)
Quarter: 2009Q4

REPORT INFORMATION
  Report Type: 
  Country: None (occurrence: None)
  Receive Date: 20091020
  Receipt Date: 20091012
  Transmission Date: 20100525
  Serious: Yes (Hospitalization)
  Sender: FDA-Public Use
  Company Number: FR-ABBOTT-09P-056-0602293-00

PATIENT
  Sex: Male

DRUGS (10)
  1. DEPAKENE [Suspect]
     Indication: CONVULSION
     Route: 048
  2. URBANYL [Concomitant]
     Indication: DRUG USE FOR UNKNOWN INDICATION
     Route: 048
  3. LOVENOX [Concomitant]
     Indication: DRUG USE FOR UNKNOWN INDICATION
     Route: 042
     Dates: start: 20090201
  4. EPITOMAX [Concomitant]
     Indication: DRUG USE FOR UNKNOWN INDICATION
     Route: 048
  5. GARDENAL [Concomitant]
     Indication: DRUG USE FOR UNKNOWN INDICATION
     Route: 048
     Dates: end: 20090420
  6. GARDENAL [Concomitant]
     Route: 048
     Dates: start: 20090421, end: 20090610
  7. GARDENAL [Concomitant]
     Route: 048
     Dates: start: 20090611
  8. ALTIM [Concomitant]
     Indication: MUSCULOSKELETAL PAIN
     Route: 014
     Dates: start: 20090611
  9. TEGRETOL [Concomitant]
     Indication: DRUG USE FOR UNKNOWN INDICATION
     Route: 048
  10. NEXIUM [Concomitant]
     Indication: DRUG USE FOR UNKNOWN INDICATION

REACTIONS (2)
  - ANTICONVULSANT DRUG LEVEL ABOVE THERAPEUTIC [None]
  - THROMBOCYTOPENIA [None]
